FAERS Safety Report 5257364-9 (Version None)
Quarter: 2007Q1

REPORT INFORMATION
  Report Type: 
  Country: None (occurrence: None)
  Receive Date: 20070302
  Receipt Date: 20070222
  Transmission Date: 20070707
  Serious: Yes (Life-Threatening, Hospitalization, Other)
  Sender: FDA-Public Use
  Company Number: 2006S1000165

PATIENT
  Age: 6 Year
  Sex: Male

DRUGS (13)
  1. NITRIC OXIDE [Suspect]
     Indication: LUNG DISORDER
     Dosage: 5 PPM; INH_GAS; INH;
     Route: 055
     Dates: start: 20060810, end: 20060819
  2. NITRIC OXIDE [Suspect]
     Indication: PROPHYLAXIS
     Dosage: 5 PPM; INH_GAS; INH;
     Route: 055
     Dates: start: 20060810, end: 20060819
  3. AMPICILLIN [Concomitant]
  4. AMIKACIN (AMKACIN) [Concomitant]
  5. MICONAZOLE [Concomitant]
  6. FERNTANYL (FENTANYL) [Concomitant]
  7. INSULIN [Concomitant]
  8. CAFFEINE (CAFFEINE) [Concomitant]
  9. FLUNCONAZOLE (FLUCONAZOLE) [Concomitant]
  10. NYSTATIN [Concomitant]
  11. NYSTATIN [Concomitant]
  12. FENTANYL [Concomitant]
  13. DOPAMINE HCL [Concomitant]

REACTIONS (3)
  - NECROTISING ENTEROCOLITIS NEONATAL [None]
  - PATENT DUCTUS ARTERIOSUS [None]
  - SMALL INTESTINAL PERFORATION [None]
